FAERS Safety Report 6257696-1 (Version None)
Quarter: 2009Q3

REPORT INFORMATION
  Report Type: 
  Country: None (occurrence: None)
  Receive Date: 20090706
  Receipt Date: 20090629
  Transmission Date: 20100115
  Serious: Yes (Life-Threatening)
  Sender: FDA-Public Use
  Company Number: FR-TEVA-193257ISR

PATIENT
  Sex: Male

DRUGS (12)
  1. CARBOPLATIN [Suspect]
     Indication: AUTOLOGOUS BONE MARROW TRANSPLANTATION THERAPY
     Route: 042
     Dates: start: 20090217, end: 20090220
  2. CYCLOPHOSPHAMIDE [Suspect]
     Indication: AUTOLOGOUS BONE MARROW TRANSPLANTATION THERAPY
     Route: 042
     Dates: start: 20090217, end: 20090220
  3. ETOPOSIDE [Suspect]
     Indication: AUTOLOGOUS BONE MARROW TRANSPLANTATION THERAPY
     Route: 042
     Dates: start: 20090217, end: 20090220
  4. RACECADOTRIL (TIORPHAN) [Concomitant]
  5. METRONIDAZOLE [Concomitant]
  6. ONDANSETRON HYDROCHLORIDE [Concomitant]
  7. APREPITANT [Concomitant]
  8. CHLORPROMAZINE HCL [Concomitant]
  9. CEFTAZIDIME [Concomitant]
     Dates: start: 20090223
  10. AMIKACIN [Concomitant]
     Dates: start: 20090223, end: 20090223
  11. CIPROFLOXACIN [Concomitant]
     Dates: start: 20090224
  12. OLICLINOMEL [Concomitant]
     Dates: start: 20090225

REACTIONS (11)
  - ACUTE RESPIRATORY DISTRESS SYNDROME [None]
  - CEREBELLAR SYNDROME [None]
  - CONFUSIONAL STATE [None]
  - DIALYSIS [None]
  - NEPHROTIC SYNDROME [None]
  - PERICARDIAL EFFUSION [None]
  - PULMONARY ALVEOLAR HAEMORRHAGE [None]
  - PULMONARY RENAL SYNDROME [None]
  - SUPERINFECTION [None]
  - THROMBOTIC MICROANGIOPATHY [None]
  - THROMBOTIC THROMBOCYTOPENIC PURPURA [None]
